FAERS Safety Report 9226143 (Version 1)
Quarter: 2013Q2

REPORT INFORMATION
  Report Type: Spontaneous
  Country: US (occurrence: US)
  Receive Date: 20130411
  Receipt Date: 20130411
  Transmission Date: 20140414
  Serious: Yes (Other)
  Sender: FDA-Public Use
  Company Number: US-PFIZER INC-2013113676

PATIENT
  Age: 70 Year
  Sex: Female
  Weight: 79.82 kg

DRUGS (5)
  1. LYRICA [Suspect]
     Indication: PAIN
     Dosage: 25 MG, 3X/DAY
     Dates: end: 201303
  2. OXYCODONE HYDROCHLORIDE [Suspect]
     Indication: PAIN
     Dosage: UNK, AS NEEDED
     Dates: end: 201303
  3. VALIUM [Suspect]
     Dosage: 5 MG, AS NEEDED
     Dates: end: 201303
  4. LISINOPRIL [Suspect]
     Dosage: 20 MG, UNK
  5. IBUPROFEN [Concomitant]
     Dosage: UNK

REACTIONS (4)
  - Depression [Not Recovered/Not Resolved]
  - Suicidal ideation [Not Recovered/Not Resolved]
  - Thinking abnormal [Not Recovered/Not Resolved]
  - Irritability [Not Recovered/Not Resolved]
